FAERS Safety Report 4965020-7 (Version None)
Quarter: 2006Q1

REPORT INFORMATION
  Report Type: 
  Country: None (occurrence: None)
  Receive Date: 20060207
  Receipt Date: 20050818
  Transmission Date: 20060701
  Serious: Yes (Life-Threatening)
  Sender: FDA-Public Use
  Company Number: 246771

PATIENT
  Age: 67 Year
  Sex: Female
  Weight: 53.1 kg

DRUGS (8)
  1. NOVOLOG [Suspect]
     Indication: DIABETES MELLITUS INSULIN-DEPENDENT
     Dosage: SEE IMAGE
     Route: 058
     Dates: start: 20050401, end: 20050608
  2. NOVOLOG [Suspect]
     Indication: DIABETES MELLITUS INSULIN-DEPENDENT
     Dosage: SEE IMAGE
     Route: 058
     Dates: start: 20050609
  3. LANTUS [Concomitant]
  4. COLACE (DOCUSATE SODIUM) [Concomitant]
  5. ALTACE [Concomitant]
  6. ASPIRIN [Concomitant]
  7. LIPITOR [Concomitant]
  8. ZETIA [Concomitant]

REACTIONS (1)
  - HYPOGLYCAEMIC COMA [None]
